FAERS Safety Report 8854500 (Version 1)
Quarter: 2012Q4

REPORT INFORMATION
  Report Type: 
  Country: US (occurrence: US)
  Receive Date: 20121023
  Receipt Date: 20121023
  Transmission Date: 20130627
  Serious: Yes (Hospitalization, Other)
  Sender: FDA-Public Use
  Company Number: US-PFIZER INC-2012264267

PATIENT
  Age: 55 Year
  Sex: Male
  Weight: 79.37 kg

DRUGS (2)
  1. LYRICA [Suspect]
     Indication: NEURALGIA
     Dosage: 300 mg, UNK
     Route: 048
     Dates: start: 2012
  2. ZOLOFT [Concomitant]
     Dosage: 100 mg, UNK
     Route: 048

REACTIONS (1)
  - Upper limb fracture [Recovered/Resolved]
